FAERS Safety Report 9017262 (Version 1)
Quarter: 2013Q1

REPORT INFORMATION
  Report Type: Spontaneous
  Country: US (occurrence: US)
  Receive Date: 20130117
  Receipt Date: 20130117
  Transmission Date: 20140127
  Serious: Yes (Other)
  Sender: FDA-Public Use
  Company Number: US-009507513-1301USA003623

PATIENT
  Age: 45 Year
  Sex: Female

DRUGS (2)
  1. SINGULAIR [Suspect]
     Indication: INNER EAR DISORDER
     Dosage: 10 MG, ONCE DAILY
     Route: 048
  2. SINGULAIR [Suspect]
     Indication: MULTIPLE ALLERGIES

REACTIONS (7)
  - Tremor [Unknown]
  - Suicidal ideation [Unknown]
  - Self-injurious ideation [Unknown]
  - Nervousness [Unknown]
  - Anxiety [Unknown]
  - Anger [Unknown]
  - Agitation [Unknown]
